FAERS Safety Report 11088689 (Version 5)
Quarter: 2015Q3

REPORT INFORMATION
  Report Type: Spontaneous
  Country: US (occurrence: US)
  Receive Date: 20150504
  Receipt Date: 20150807
  Transmission Date: 20151125
  Serious: No
  Sender: FDA-Public Use
  Company Number: US-GLAXOSMITHKLINE-US2015059573

PATIENT
  Age: 72 Year
  Sex: Female

DRUGS (2)
  1. NICODERM CQ [Suspect]
     Active Substance: NICOTINE
     Indication: SMOKING CESSATION THERAPY
     Dosage: 21 MG, UNK
     Route: 062
  2. NICORETTE [Suspect]
     Active Substance: NICOTINE
     Indication: SMOKING CESSATION THERAPY
     Dosage: 4 MG, UNK
     Route: 002

REACTIONS (6)
  - Product quality issue [Unknown]
  - Drug administration error [Unknown]
  - Application site erythema [Not Recovered/Not Resolved]
  - Application site pain [Unknown]
  - Toothache [Recovered/Resolved]
  - Application site pruritus [Not Recovered/Not Resolved]
